FAERS Safety Report 5243899-1 (Version None)
Quarter: 2007Q1

REPORT INFORMATION
  Report Type: 
  Country: None (occurrence: None)
  Receive Date: 20070222
  Receipt Date: 20070210
  Transmission Date: 20070707
  Serious: Yes (Other)
  Sender: FDA-Public Use
  Company Number: PHEH2007US01956

PATIENT
  Age: 19 Year
  Sex: Female

DRUGS (2)
  1. FOCALIN XR [Suspect]
  2. CYMBALTA [Concomitant]
     Dosage: 60 MG, QD

REACTIONS (3)
  - DEPRESSED MOOD [None]
  - DEPRESSION [None]
  - SOCIAL AVOIDANT BEHAVIOUR [None]
